FAERS Safety Report 4846098-8 (Version None)
Quarter: 2005Q4

REPORT INFORMATION
  Report Type: 
  Country: None (occurrence: None)
  Receive Date: 20051130
  Receipt Date: 20051118
  Transmission Date: 20060501
  Serious: Yes (Other)
  Sender: FDA-Public Use
  Company Number: 2005158559

PATIENT
  Sex: Female
  Weight: 58.9676 kg

DRUGS (1)
  1. CELEBREX [Suspect]
     Indication: ENDOMETRIOSIS

REACTIONS (6)
  - ANAEMIA [None]
  - CONDITION AGGRAVATED [None]
  - DEHYDRATION [None]
  - ENDOMETRIOSIS [None]
  - HAEMATEMESIS [None]
  - ULCER HAEMORRHAGE [None]
